FAERS Safety Report 16465264 (Version 1)
Quarter: 2019Q2

REPORT INFORMATION
  Report Type: Spontaneous
  Country: JP (occurrence: JP)
  Receive Date: 20190621
  Receipt Date: 20190621
  Transmission Date: 20190711
  Serious: Yes (Death)
  Sender: FDA-Public Use
  Company Number: JP-EISAI MEDICAL RESEARCH-EC-2019-058092

PATIENT
  Sex: Female

DRUGS (1)
  1. LENVATINIB [Suspect]
     Active Substance: LENVATINIB
     Indication: ANAPLASTIC THYROID CANCER
     Dosage: DOSE  AND FREQUENCY UNKNOWN
     Route: 048

REACTIONS (2)
  - Haemoptysis [Unknown]
  - Malignant neoplasm progression [Fatal]
